FAERS Safety Report 8552939-3 (Version None)
Quarter: 2012Q3

REPORT INFORMATION
  Report Type: 
  Country: None (occurrence: None)
  Receive Date: 20120731
  Receipt Date: 20120730
  Transmission Date: 20120928
  Serious: No
  Sender: FDA-Public Use
  Company Number: PHHY2012LB065405

PATIENT
  Age: 43 Year
  Sex: Female

DRUGS (3)
  1. ESCITALOPRAM [Concomitant]
     Dates: start: 20100101
  2. GASTRIMUT [Concomitant]
  3. TASIGNA [Suspect]
     Dosage: 300 MG, DAILY
     Route: 048
     Dates: start: 20120622

REACTIONS (1)
  - PAIN IN JAW [None]
